FAERS Safety Report 6427789-4 (Version None)
Quarter: 2009Q4

REPORT INFORMATION
  Report Type: 
  Country: None (occurrence: None)
  Receive Date: 20091104
  Receipt Date: 20091104
  Transmission Date: 20100525
  Serious: Yes (Other)
  Sender: FDA-Public Use
  Company Number: None

PATIENT
  Age: 44 Year
  Sex: Male
  Weight: 67.05 kg

DRUGS (31)
  1. THYMOGLOBULIN [Suspect]
     Indication: IMMUNOSUPPRESSANT DRUG THERAPY
     Dosage: 150MG
     Dates: start: 20090926, end: 20090930
  2. THYMOGLOBULIN [Suspect]
  3. INSULIN [Concomitant]
  4. MANNITOL [Concomitant]
  5. METOPROLOL [Concomitant]
  6. MULTI-VITAMIN [Concomitant]
  7. MYCOPHENOLATE MOFETIL [Concomitant]
  8. NALOXONE [Concomitant]
  9. NICOTINE [Concomitant]
  10. ASPIRIN [Concomitant]
  11. DOPAMINE HCL [Concomitant]
  12. EPOETIN ALFA [Concomitant]
  13. ESOMEPRAZOLE MAGNESIUM [Concomitant]
  14. HYDROMORPHONE HCL [Concomitant]
  15. NYSTATIN [Concomitant]
  16. ONDANSETRON [Concomitant]
  17. PARACALCITOL [Concomitant]
  18. POLYETHYLENE GLYCOL [Concomitant]
  19. PROMETHAZINE [Concomitant]
  20. SENNA [Concomitant]
  21. SODIUM BICARBONATE AND NACL [Concomitant]
  22. SODIUM CHLORIDE [Concomitant]
  23. TACROLIMUS [Concomitant]
  24. BACTRIM [Concomitant]
  25. CEFOTETAN [Concomitant]
  26. DOPAMINE HCL [Concomitant]
  27. FUROSEMIDE [Concomitant]
  28. HEPARIN [Concomitant]
  29. MAGNESIUM SULFATE [Concomitant]
  30. METHYLPREDNISOLONE 4MG TAB [Concomitant]
  31. MYCOPHENOLATE MOFETIL [Concomitant]

REACTIONS (1)
  - PRODUCT QUALITY ISSUE [None]
